FAERS Safety Report 25070406 (Version 3)
Quarter: 2025Q3

REPORT INFORMATION
  Report Type: Report from Study
  Country: US (occurrence: US)
  Receive Date: 20250312
  Receipt Date: 20250803
  Transmission Date: 20251020
  Serious: No
  Sender: ALEXION PHARMACEUTICALS
  Company Number: US-AstraZeneca-CH-00818023A

PATIENT
  Age: 60 Year
  Sex: Male

DRUGS (12)
  1. FARXIGA [Suspect]
     Active Substance: DAPAGLIFLOZIN PROPANEDIOL
     Route: 065
  2. BUDESONIDE [Concomitant]
     Active Substance: BUDESONIDE
     Route: 065
  3. ARFORMOTEROL [Concomitant]
     Active Substance: ARFORMOTEROL
     Route: 065
  4. IPRATROPIUM [Concomitant]
     Active Substance: IPRATROPIUM
     Route: 065
  5. AMIODARONE [Concomitant]
     Active Substance: AMIODARONE
     Route: 065
  6. APIXABAN [Concomitant]
     Active Substance: APIXABAN
     Route: 065
  7. ASPIRIN [Concomitant]
     Active Substance: ASPIRIN
     Route: 065
  8. ATORVASTATIN [Concomitant]
     Active Substance: ATORVASTATIN
     Route: 065
  9. CARVEDILOL [Concomitant]
     Active Substance: CARVEDILOL
     Route: 065
  10. FUROSEMIDE [Concomitant]
     Active Substance: FUROSEMIDE
     Route: 065
  11. LOSARTAN [Concomitant]
     Active Substance: LOSARTAN
     Route: 065
  12. SPIRONOLACTONE [Concomitant]
     Active Substance: SPIRONOLACTONE
     Route: 065

REACTIONS (1)
  - No adverse event [Unknown]
